FAERS Safety Report 8620996-1 (Version None)
Quarter: 2012Q3

REPORT INFORMATION
  Report Type: 
  Country: None (occurrence: None)
  Receive Date: 20120824
  Receipt Date: 20120525
  Transmission Date: 20120928
  Serious: Yes (Death)
  Sender: FDA-Public Use
  Company Number: GB-PFIZER INC-2012204671

PATIENT

DRUGS (1)
  1. VIAGRA [Suspect]
     Indication: PULMONARY HYPERTENSION
     Dosage: 25 MG X 8

REACTIONS (2)
  - DEATH [None]
  - OFF LABEL USE [None]
